FAERS Safety Report 4771857-X (Version None)
Quarter: 2005Q3

REPORT INFORMATION
  Report Type: 
  Country: None (occurrence: None)
  Receive Date: 20050916
  Receipt Date: 20050907
  Transmission Date: 20060218
  Serious: Yes (Death, Hospitalization)
  Sender: FDA-Public Use
  Company Number: US-JNJFOC-20050902348

PATIENT
  Age: 21 Year
  Sex: Female

DRUGS (9)
  1. ACETAMINOPHEN [Suspect]
     Route: 048
  2. ACETAMINOPHEN [Suspect]
     Indication: SUICIDE ATTEMPT
     Route: 048
  3. RISPERDONE [Suspect]
     Indication: SUICIDE ATTEMPT
     Route: 048
  4. ASPIRIN [Suspect]
     Indication: SUICIDE ATTEMPT
     Route: 048
  5. ZOLPIDEM [Suspect]
     Indication: SUICIDE ATTEMPT
     Route: 048
  6. LAMOTRIGINE [Suspect]
     Indication: SUICIDE ATTEMPT
     Route: 048
  7. CLONAZEPAM [Suspect]
     Indication: SUICIDE ATTEMPT
     Route: 048
  8. VENLAFAXINE [Suspect]
     Indication: SUICIDE ATTEMPT
     Route: 048
  9. IMIPRAMINE [Suspect]
     Indication: SUICIDE ATTEMPT
     Route: 048

REACTIONS (16)
  - CARDIAC ARREST [None]
  - CARDIO-RESPIRATORY ARREST [None]
  - COMPLETED SUICIDE [None]
  - CONFUSIONAL STATE [None]
  - DIALYSIS [None]
  - HEPATIC FAILURE [None]
  - HEPATIC NECROSIS [None]
  - HYPERKALAEMIA [None]
  - INTENTIONAL MISUSE [None]
  - LETHARGY [None]
  - LIVER TRANSPLANT [None]
  - MENTAL STATUS CHANGES [None]
  - MULTIPLE DRUG OVERDOSE [None]
  - MYDRIASIS [None]
  - OVERDOSE [None]
  - SINUS TACHYCARDIA [None]
